FAERS Safety Report 19350775 (Version 1)
Quarter: 2021Q2

REPORT INFORMATION
  Report Type: Spontaneous
  Country: GB (occurrence: GB)
  Receive Date: 20210531
  Receipt Date: 20210531
  Transmission Date: 20210717
  Serious: Yes (Disabling)
  Sender: FDA-Public Use
  Company Number: GB-SUN PHARMACEUTICAL INDUSTRIES LTD-2021RR-298514

PATIENT

DRUGS (1)
  1. ATORVASTATIN [Suspect]
     Active Substance: ATORVASTATIN
     Indication: ISCHAEMIC STROKE
     Dosage: 80MG, UNK
     Route: 048
     Dates: start: 20210325, end: 20210517

REACTIONS (2)
  - Dysuria [Unknown]
  - Myalgia [Unknown]

NARRATIVE: CASE EVENT DATE: 20210401
